FAERS Safety Report 5758045-5 (Version None)
Quarter: 2008Q2

REPORT INFORMATION
  Report Type: 
  Country: None (occurrence: None)
  Receive Date: 20080602
  Receipt Date: 20080602
  Transmission Date: 20081010
  Serious: Yes (Other)
  Sender: FDA-Public Use
  Company Number: None

PATIENT
  Age: 70 Year
  Sex: Female
  Weight: 90.7194 kg

DRUGS (2)
  1. CARVIDOL  12.5MG [Suspect]
     Indication: CORONARY ARTERY DISEASE
     Dosage: 12.5MG BID INJ
     Dates: start: 20071125, end: 20071128
  2. CARVIDOL  12.5MG [Suspect]
     Indication: ISCHAEMIC CARDIOMYOPATHY
     Dosage: 12.5MG BID INJ
     Dates: start: 20071125, end: 20071128

REACTIONS (5)
  - ANXIETY [None]
  - FEELING ABNORMAL [None]
  - NAUSEA [None]
  - TREMOR [None]
  - VOMITING [None]
